FAERS Safety Report 6022337-5 (Version None)
Quarter: 2008Q4

REPORT INFORMATION
  Report Type: 
  Country: None (occurrence: None)
  Receive Date: 20081223
  Receipt Date: 20081215
  Transmission Date: 20090506
  Serious: Yes (Death, Other)
  Sender: FDA-Public Use
  Company Number: 100#08#2008-06260

PATIENT
  Age: 68 Year
  Sex: Male

DRUGS (4)
  1. IRINOTECAN HCL [Suspect]
     Indication: COLON CANCER METASTATIC
  2. OXALIPLATIN [Suspect]
  3. FOLINIC ACID (CALCIUM FOLINATE) [Concomitant]
  4. FLUOROURACIL [Concomitant]

REACTIONS (6)
  - DISEASE PROGRESSION [None]
  - INTERSTITIAL LUNG DISEASE [None]
  - METASTASES TO LUNG [None]
  - PERIPHERAL SENSORY NEUROPATHY [None]
  - RESPIRATORY DISTRESS [None]
  - RESPIRATORY FAILURE [None]
